FAERS Safety Report 6830576-6 (Version None)
Quarter: 2010Q3

REPORT INFORMATION
  Report Type: 
  Country: None (occurrence: None)
  Receive Date: 20100712
  Receipt Date: 20100701
  Transmission Date: 20110219
  Serious: Yes (Death, Life-Threatening, Hospitalization, Disabling)
  Sender: FDA-Public Use
  Company Number: ES-CELGENEUS-144-21880-10061766

PATIENT
  Sex: Female
  Weight: 57 kg

DRUGS (24)
  1. REVLIMID [Suspect]
     Indication: MULTIPLE MYELOMA
     Route: 048
     Dates: start: 20100521, end: 20100608
  2. REVLIMID [Suspect]
     Route: 048
     Dates: start: 20091112
  3. DEXAMETHASONE [Suspect]
     Indication: MULTIPLE MYELOMA
     Route: 048
     Dates: start: 20100521, end: 20100608
  4. DEXAMETHASONE [Suspect]
     Route: 048
     Dates: start: 20091112
  5. DEXAMETHASONE [Suspect]
     Route: 065
     Dates: start: 20100629
  6. BORTEZOMIB [Suspect]
     Route: 051
     Dates: start: 20100608
  7. BORTEZOMIB [Suspect]
     Route: 051
     Dates: start: 20100629
  8. LEVOTHYROXINE SODIUM [Concomitant]
     Indication: HYPOTHYROIDISM
     Route: 048
  9. ACYCLOVIR [Concomitant]
     Indication: PROPHYLAXIS
     Route: 048
     Dates: start: 20091112, end: 20100531
  10. ADIRO [Concomitant]
     Indication: PROPHYLAXIS
     Route: 048
     Dates: start: 20091112, end: 20100601
  11. EPOGEN [Concomitant]
     Route: 058
     Dates: end: 20100531
  12. CIPROFLOXACIN [Concomitant]
     Route: 051
     Dates: start: 20100604, end: 20100614
  13. ADOLONTA [Concomitant]
     Route: 051
     Dates: start: 20100604, end: 20100630
  14. ALLOPURINOL [Concomitant]
     Route: 048
     Dates: start: 20100608, end: 20100630
  15. FORTECORTIN [Concomitant]
     Route: 051
     Dates: start: 20100608, end: 20100630
  16. SEGURIL [Concomitant]
     Indication: PLEURAL DISORDER
     Route: 051
     Dates: start: 20100609, end: 20100701
  17. CALCIUM D SANDOZ FORTE [Concomitant]
     Indication: HYPOCALCAEMIA
     Route: 051
     Dates: start: 20100611, end: 20100615
  18. PLASMA [Concomitant]
     Indication: COAGULOPATHY
     Route: 051
     Dates: start: 20100615, end: 20100701
  19. NEUPOGEN [Concomitant]
     Indication: NEUTROPENIA
     Dates: start: 20100616, end: 20100618
  20. CALCIUM GLUCONATE [Concomitant]
     Indication: HYPOCALCAEMIA
     Route: 051
     Dates: start: 20100616, end: 20100618
  21. CAPOTEN [Concomitant]
     Indication: ACUTE PULMONARY OEDEMA
     Route: 048
     Dates: start: 20100630, end: 20100701
  22. MERONEM [Concomitant]
     Indication: FEBRILE NEUTROPENIA
     Route: 051
     Dates: start: 20100618, end: 20100701
  23. FORTASEC [Concomitant]
     Route: 048
     Dates: start: 20100625, end: 20100701
  24. PRIMPERAN TAB [Concomitant]
     Indication: NAUSEA
     Route: 051
     Dates: start: 20100620, end: 20100701

REACTIONS (1)
  - THROMBOCYTOPENIA [None]
